FAERS Safety Report 8577844-8 (Version None)
Quarter: 2012Q3

REPORT INFORMATION
  Report Type: 
  Country: None (occurrence: None)
  Receive Date: 20120808
  Receipt Date: 20120731
  Transmission Date: 20120928
  Serious: No
  Sender: FDA-Public Use
  Company Number: US-BIOGENIDEC-2012BI028446

PATIENT
  Age: 53 Year
  Sex: Female

DRUGS (4)
  1. TYSABRI [Suspect]
     Indication: MULTIPLE SCLEROSIS
     Route: 042
     Dates: start: 20060915, end: 20091105
  2. AVONEX [Concomitant]
     Indication: MULTIPLE SCLEROSIS
     Route: 030
     Dates: start: 19961202, end: 20060730
  3. TYSABRI [Suspect]
     Route: 042
     Dates: start: 20110630
  4. AVONEX [Concomitant]
     Route: 030
     Dates: start: 20100713

REACTIONS (1)
  - NERVOUSNESS [None]
